FAERS Safety Report 22753256 (Version 5)
Quarter: 2023Q4

REPORT INFORMATION
  Report Type: Report from Study
  Country: US (occurrence: US)
  Receive Date: 20230726
  Receipt Date: 20231107
  Transmission Date: 20240110
  Serious: Yes (Life-Threatening, Hospitalization)
  Sender: FDA-Public Use
  Company Number: US-UCBSA-2023035190

PATIENT
  Age: 67 Year
  Sex: Male

DRUGS (2)
  1. CERTOLIZUMAB PEGOL [Suspect]
     Active Substance: CERTOLIZUMAB PEGOL
     Indication: Psoriasis
     Dosage: 400 MILLIGRAM, EV 2 WEEKS(QOW)
     Route: 058
     Dates: start: 20230403
  2. NAPROSYN [Suspect]
     Active Substance: NAPROXEN
     Indication: Cyst rupture
     Dosage: UNK

REACTIONS (15)
  - Hepatic enzyme increased [Recovered/Resolved]
  - Synovial cyst [Recovering/Resolving]
  - Ocular icterus [Not Recovered/Not Resolved]
  - Chromaturia [Not Recovered/Not Resolved]
  - Faeces discoloured [Not Recovered/Not Resolved]
  - White blood cell count increased [Recovering/Resolving]
  - Pancreatic enzymes increased [Recovering/Resolving]
  - Pruritus [Unknown]
  - Abdominal pain upper [Recovered/Resolved]
  - Flatulence [Unknown]
  - Sunburn [Unknown]
  - Dry skin [Unknown]
  - Cyst rupture [Recovered/Resolved]
  - Decreased appetite [Recovered/Resolved]
  - Fatigue [Recovered/Resolved]

NARRATIVE: CASE EVENT DATE: 20230701
